FAERS Safety Report 11827269 (Version 1)
Quarter: 2015Q4

REPORT INFORMATION
  Report Type: Spontaneous
  Country: GB (occurrence: GB)
  Receive Date: 20151211
  Receipt Date: 20151211
  Transmission Date: 20160305
  Serious: Yes (Other)
  Sender: FDA-Public Use
  Company Number: GB-ABBVIE-15P-167-1517961-00

PATIENT
  Sex: Male

DRUGS (1)
  1. PROSTAP SR DCS 3.75MG [Suspect]
     Active Substance: LEUPROLIDE ACETATE
     Indication: PROSTATE CANCER
     Dosage: 3.75 MG, UNKNOWN
     Route: 065

REACTIONS (2)
  - Visual acuity reduced [Unknown]
  - Fatigue [Unknown]
